FAERS Safety Report 14574388 (Version 1)
Quarter: 2018Q1

REPORT INFORMATION
  Report Type: Spontaneous
  Country: RU (occurrence: RU)
  Receive Date: 20180226
  Receipt Date: 20180226
  Transmission Date: 20180509
  Serious: Yes (Other)
  Sender: FDA-Public Use
  Company Number: RU-ASTRAZENECA-2018SE22615

PATIENT
  Age: 60 Year
  Sex: Female
  Weight: 85 kg

DRUGS (6)
  1. THROMBO ASS [Concomitant]
     Active Substance: ASPIRIN
  2. VEROSPIRON [Concomitant]
     Active Substance: SPIRONOLACTONE
  3. BISOPROLOL [Concomitant]
     Active Substance: BISOPROLOL
  4. ATORVASTATIN [Concomitant]
     Active Substance: ATORVASTATIN
  5. BRILINTA [Suspect]
     Active Substance: TICAGRELOR
     Indication: MYOCARDIAL INFARCTION
     Route: 048
     Dates: start: 201703
  6. PRESTANCE [Concomitant]
     Active Substance: AMLODIPINE BESYLATE\PERINDOPRIL ARGININE

REACTIONS (3)
  - Weight increased [Not Recovered/Not Resolved]
  - Coronary artery stenosis [Not Recovered/Not Resolved]
  - Gastritis [Not Recovered/Not Resolved]
